FAERS Safety Report 9442750 (Version 1)
Quarter: 2013Q3

REPORT INFORMATION
  Report Type: Spontaneous
  Country: US (occurrence: None)
  Receive Date: 20130805
  Receipt Date: 20130805
  Transmission Date: 20140515
  Serious: Yes (Other)
  Sender: FDA-Public Use
  Company Number: None

PATIENT
  Age: 61 Year
  Sex: Male
  Weight: 117.94 kg

DRUGS (1)
  1. FLECAINIDE ACETATE [Suspect]
     Dosage: 2 TABLETS -100MG- TWICE DAILY PO
     Route: 048

REACTIONS (1)
  - Dyspnoea [None]
